FAERS Safety Report 25591049 (Version 2)
Quarter: 2025Q3

REPORT INFORMATION
  Report Type: Report from Study
  Country: BR (occurrence: BR)
  Receive Date: 20250722
  Receipt Date: 20250730
  Transmission Date: 20251021
  Serious: Yes (Hospitalization, Other)
  Sender: BIOGEN
  Company Number: BR-BIOGEN-2025BI01312340

PATIENT
  Sex: Male
  Weight: 90 kg

DRUGS (5)
  1. TYSABRI [Suspect]
     Active Substance: NATALIZUMAB
     Indication: Multiple sclerosis
     Route: 050
  2. TYSABRI [Suspect]
     Active Substance: NATALIZUMAB
     Route: 050
  3. TYSABRI [Suspect]
     Active Substance: NATALIZUMAB
     Route: 050
     Dates: start: 2021
  4. TYSABRI [Suspect]
     Active Substance: NATALIZUMAB
     Route: 050
  5. XARELTO [Concomitant]
     Active Substance: RIVAROXABAN
     Indication: Anticoagulant therapy
     Route: 050

REACTIONS (8)
  - Fall [Recovered/Resolved]
  - Upper limb fracture [Unknown]
  - Motor dysfunction [Unknown]
  - Balance disorder [Not Recovered/Not Resolved]
  - Pulmonary embolism [Unknown]
  - Deep vein thrombosis [Unknown]
  - Antiphospholipid syndrome [Unknown]
  - Multiple sclerosis [Unknown]

NARRATIVE: CASE EVENT DATE: 20220101
